FAERS Safety Report 7724462-7 (Version None)
Quarter: 2011Q3

REPORT INFORMATION
  Report Type: 
  Country: None (occurrence: None)
  Receive Date: 20110901
  Receipt Date: 20101123
  Transmission Date: 20111222
  Serious: Yes (Other)
  Sender: FDA-Public Use
  Company Number: US-GLAXOSMITHKLINE-A0894694A

PATIENT
  Age: 50 Year
  Sex: Female

DRUGS (4)
  1. XANAX [Concomitant]
  2. LAMICTAL [Suspect]
     Dosage: 200MG PER DAY
     Route: 048
  3. LITHIUM CARBONATE [Suspect]
     Route: 065
  4. LAMICTAL [Suspect]
     Indication: BIPOLAR DISORDER
     Dosage: 1.5TAB PER DAY
     Route: 048

REACTIONS (7)
  - ANGER [None]
  - DRUG INEFFECTIVE [None]
  - EMOTIONAL DISTRESS [None]
  - DRUG ADMINISTRATION ERROR [None]
  - DIZZINESS [None]
  - MANIA [None]
  - HEADACHE [None]
